FAERS Safety Report 25563982 (Version 1)
Quarter: 2025Q3

REPORT INFORMATION
  Report Type: Spontaneous
  Country: EU (occurrence: EU)
  Receive Date: 20250716
  Receipt Date: 20250716
  Transmission Date: 20251021
  Serious: Yes (Hospitalization, Other)
  Sender: CHEPLAPHARM
  Company Number: None

PATIENT
  Age: 29 Year
  Sex: Male

DRUGS (15)
  1. QUETIAPINE [Interacting]
     Active Substance: QUETIAPINE
     Indication: Suicide attempt
     Route: 048
     Dates: start: 20250206, end: 20250206
  2. QUETIAPINE [Interacting]
     Active Substance: QUETIAPINE
     Indication: Anxiolytic therapy
     Route: 048
     Dates: start: 20250206, end: 20250206
  3. QUETIAPINE [Interacting]
     Active Substance: QUETIAPINE
     Indication: Suicide attempt
  4. QUETIAPINE [Interacting]
     Active Substance: QUETIAPINE
     Indication: Anxiolytic therapy
  5. TRAZODONE [Interacting]
     Active Substance: TRAZODONE HYDROCHLORIDE
     Indication: Anxiolytic therapy
     Route: 048
     Dates: start: 20250206, end: 20250206
  6. TRAZODONE [Interacting]
     Active Substance: TRAZODONE HYDROCHLORIDE
     Indication: Suicide attempt
     Route: 048
     Dates: start: 20250206, end: 20250206
  7. TRAZODONE [Interacting]
     Active Substance: TRAZODONE HYDROCHLORIDE
     Indication: Anxiolytic therapy
     Dosage: 0-0-1?DAILY DOSE: 100 MILLIGRAM
  8. TRAZODONE [Interacting]
     Active Substance: TRAZODONE HYDROCHLORIDE
     Indication: Suicide attempt
     Dosage: 0-0-1?DAILY DOSE: 100 MILLIGRAM
  9. ARIPIPRAZOLE [Suspect]
     Active Substance: ARIPIPRAZOLE
  10. VENLAFAXINE HYDROCHLORIDE [Suspect]
     Active Substance: VENLAFAXINE HYDROCHLORIDE
  11. VENLAFAXINE HYDROCHLORIDE [Suspect]
     Active Substance: VENLAFAXINE HYDROCHLORIDE
  12. THC [Concomitant]
  13. COCAINE [Concomitant]
     Active Substance: COCAINE
  14. UNSPECIFIED INGREDIENT [Concomitant]
     Active Substance: UNSPECIFIED INGREDIENT
  15. ALCOHOL [Concomitant]
     Active Substance: ALCOHOL

REACTIONS (3)
  - Hepatic cytolysis [Recovered/Resolved]
  - Intentional overdose [Recovered/Resolved]
  - Suicide attempt [Unknown]

NARRATIVE: CASE EVENT DATE: 20250206
